FAERS Safety Report 5474238-9 (Version None)
Quarter: 2007Q4

REPORT INFORMATION
  Report Type: 
  Country: None (occurrence: None)
  Receive Date: 20071002
  Receipt Date: 20070606
  Transmission Date: 20080405
  Serious: No
  Sender: FDA-Public Use
  Company Number: US-ASTRAZENECA-2007UW13654

PATIENT
  Age: 75 Year
  Sex: Female

DRUGS (1)
  1. ARIMIDEX [Suspect]
     Route: 048
     Dates: start: 20060801

REACTIONS (5)
  - ARTHRALGIA [None]
  - HOT FLUSH [None]
  - MOOD SWINGS [None]
  - PNEUMONIA [None]
  - WEIGHT DECREASED [None]
